FAERS Safety Report 4495332-5 (Version None)
Quarter: 2004Q4

REPORT INFORMATION
  Report Type: 
  Country: None (occurrence: None)
  Receive Date: 20041108
  Receipt Date: 20041020
  Transmission Date: 20050328
  Serious: Yes (Other)
  Sender: FDA-Public Use
  Company Number: PHBS2004JP14022

PATIENT
  Age: 70 Year
  Sex: Male

DRUGS (2)
  1. PAMIDRONATE DISODIUM [Suspect]
     Indication: METASTASES TO BONE
     Dosage: 45 MG
     Route: 065
  2. TS 1 [Concomitant]
     Dosage: 80 TO 100 MG/D
     Route: 065

REACTIONS (1)
  - GASTROINTESTINAL DISORDER [None]
